FAERS Safety Report 12109888 (Version 1)
Quarter: 2016Q1

REPORT INFORMATION
  Report Type: Spontaneous
  Country: US (occurrence: None)
  Receive Date: 20160222
  Receipt Date: 20160222
  Transmission Date: 20160526
  Serious: Yes (Other)
  Sender: FDA-Public Use
  Company Number: None

PATIENT
  Sex: Male

DRUGS (1)
  1. BUPROPION XL [Suspect]
     Active Substance: BUPROPION
     Indication: MAJOR DEPRESSION
     Route: 048
     Dates: start: 2010

REACTIONS (1)
  - Pseudolymphoma [None]

NARRATIVE: CASE EVENT DATE: 2010
